FAERS Safety Report 7060356-0 (Version None)
Quarter: 2010Q4

REPORT INFORMATION
  Report Type: 
  Country: None (occurrence: None)
  Receive Date: 20101025
  Receipt Date: 20101015
  Transmission Date: 20110411
  Serious: Yes (Hospitalization)
  Sender: FDA-Public Use
  Company Number: B0679985A

PATIENT
  Age: 84 Year
  Sex: Female

DRUGS (1)
  1. VALACYCLOVIR HYDROCHLORIDE [Suspect]
     Indication: ANTIVIRAL PROPHYLAXIS
     Dosage: 500MG TWICE PER DAY
     Route: 048
     Dates: end: 20101001

REACTIONS (3)
  - BLOOD CREATININE INCREASED [None]
  - NEPHROTIC SYNDROME [None]
  - OFF LABEL USE [None]
